FAERS Safety Report 9186618 (Version 1)
Quarter: 2013Q1

REPORT INFORMATION
  Report Type: Spontaneous
  Country: CI (occurrence: CI)
  Receive Date: 20130325
  Receipt Date: 20130325
  Transmission Date: 20140127
  Serious: Yes (Life-Threatening)
  Sender: FDA-Public Use
  Company Number: CI-UCBSA-081474

PATIENT
  Sex: Male

DRUGS (1)
  1. XYZALL [Suspect]
     Indication: RHINITIS ALLERGIC
     Route: 048

REACTIONS (1)
  - Headache [Recovered/Resolved]
